FAERS Safety Report 8761115 (Version 3)
Quarter: 2013Q4

REPORT INFORMATION
  Report Type: Spontaneous
  Country: DE (occurrence: DE)
  Receive Date: 20120830
  Receipt Date: 20131126
  Transmission Date: 20140711
  Serious: Yes (Other)
  Sender: FDA-Public Use
  Company Number: DE-009507513-1208DEU010852

PATIENT
  Age: 44 Year
  Sex: Male
  Weight: 187 kg

DRUGS (1)
  1. SINGULAIR 10 MG FILMTABLETTEN [Suspect]
     Indication: ASTHMA
     Dosage: UNK
     Route: 048
     Dates: start: 201112

REACTIONS (1)
  - Allergic granulomatous angiitis [Not Recovered/Not Resolved]
